FAERS Safety Report 11672880 (Version 1)
Quarter: 2015Q4

REPORT INFORMATION
  Report Type: Spontaneous
  Country: US (occurrence: US)
  Receive Date: 20151027
  Receipt Date: 20151027
  Transmission Date: 20160304
  Serious: No
  Sender: FDA-Public Use
  Company Number: US-ELI_LILLY_AND_COMPANY-US201007001710

PATIENT
  Age: 82 Year
  Sex: Female

DRUGS (3)
  1. FORTEO [Suspect]
     Active Substance: TERIPARATIDE
     Dosage: 20 UG, DAILY (1/D)
     Dates: start: 20100701
  2. VITAMIN K [Concomitant]
     Active Substance: PHYTONADIONE
     Dosage: 50 MG, UNK
  3. COUMADIN [Concomitant]
     Active Substance: WARFARIN SODIUM
     Dosage: 2.5 MG, UNK

REACTIONS (6)
  - International normalised ratio increased [Unknown]
  - Ocular hyperaemia [Unknown]
  - Injection site bruising [Unknown]
  - Periorbital haematoma [Unknown]
  - Drug interaction [Unknown]
  - Periorbital oedema [Unknown]

NARRATIVE: CASE EVENT DATE: 20100701
